FAERS Safety Report 12333239 (Version 2)
Quarter: 2016Q2

REPORT INFORMATION
  Report Type: Spontaneous
  Country: DK (occurrence: CN)
  Receive Date: 20160504
  Receipt Date: 20160506
  Transmission Date: 20160815
  Serious: Yes (Other)
  Sender: FDA-Public Use
  Company Number: CN-FRI-1000084324

PATIENT
  Age: 35 Year
  Sex: Female

DRUGS (4)
  1. ESCITALOPRAM [Suspect]
     Active Substance: ESCITALOPRAM OXALATE
     Indication: DEPRESSION
     Dosage: 0.5 TABLET, 1 TABLET, 1.5 TABLETS AND 2 TABLETS (STEP INCREASED FOR 2 MONTHS). THEN STEP DECREASED F
     Route: 065
     Dates: start: 2012, end: 2013
  2. ELEVIT VITAMIN COMPLEX [Concomitant]
     Indication: PRODUCT USED FOR UNKNOWN INDICATION
     Route: 065
  3. ESCITALOPRAM [Suspect]
     Active Substance: ESCITALOPRAM OXALATE
     Dosage: 1 TABLET PER DAY
     Route: 065
     Dates: start: 2016
  4. ESCITALOPRAM [Suspect]
     Active Substance: ESCITALOPRAM OXALATE
     Dosage: STEP INCREASED TO 1.5 TABLETS
     Route: 065
     Dates: start: 2015

REACTIONS (5)
  - Drug dependence [Unknown]
  - Drug ineffective [Unknown]
  - Depression [Unknown]
  - Feeling abnormal [Unknown]
  - Exposure during pregnancy [Unknown]
